FAERS Safety Report 7443513-0 (Version None)
Quarter: 2011Q2

REPORT INFORMATION
  Report Type: 
  Country: None (occurrence: None)
  Receive Date: 20110420
  Receipt Date: 20110405
  Transmission Date: 20111010
  Serious: Yes (Hospitalization, Other)
  Sender: FDA-Public Use
  Company Number: CIP11000527

PATIENT
  Age: 90 Year
  Sex: Female

DRUGS (34)
  1. ZYRTEC-D 12 HOUR [Concomitant]
  2. PROVENTIL [Concomitant]
  3. LOPID [Concomitant]
  4. BEXTRA (PARACOXIB SODIUM) [Concomitant]
  5. CIPRO [Concomitant]
  6. PYRIDIUM (PHENAZOPYRIDINE HYDROCHLORIDE) [Concomitant]
  7. LISINOPRIL [Concomitant]
  8. PROTONIX [Concomitant]
  9. COMBIVENT [Concomitant]
  10. FLONASE [Concomitant]
  11. TUMS (CALCIUM CARBONATE) [Concomitant]
  12. DEPO-MEDROL [Concomitant]
  13. MICRO K (POTASSIIUM CHLORIDE) [Concomitant]
  14. PEPCID [Concomitant]
  15. AVELOX [Concomitant]
  16. ROBITUSSIN AC (CODEINE PHOSPHATE, GUAIFENESIN, PHENIRAMINE MALEATE) [Concomitant]
  17. PRILOSEC [Concomitant]
  18. NORVASC [Concomitant]
  19. ACTONEL [Suspect]
     Indication: OSTEOPOROSIS
     Dosage: 35 MG ONCE WEEKLY, ORAL
     Route: 048
     Dates: start: 20020621, end: 20080123
  20. LASIX [Concomitant]
  21. EVISTA [Concomitant]
  22. MULTIVITAMIN (ASCORBIC ACID, CALCIUM PANTOTHENATE, ERGOCALCIFEROL, NIC [Concomitant]
  23. LEVAQUIN [Concomitant]
  24. LOTENSIN [Concomitant]
  25. MEDROL [Concomitant]
  26. PENICILLIN VK (PHENOXYMETHYLPENICILLIN) [Concomitant]
  27. PREDNISONE [Concomitant]
  28. AZITHROMYCIN [Concomitant]
  29. SEPTRA [Concomitant]
  30. COUMADIN [Concomitant]
  31. VOLTAREN [Concomitant]
  32. ASPIRIN [Concomitant]
  33. OSCAL (CALCIUM CARBONATE) [Concomitant]
  34. ASCRIPTIN (ACETYLSALICYLIC ACID, ALUMINIUM HYDROXIDE, MAGNESIUM HYDROX [Concomitant]

REACTIONS (8)
  - FEMUR FRACTURE [None]
  - ARTHRALGIA [None]
  - COMMINUTED FRACTURE [None]
  - FALL [None]
  - PAIN IN EXTREMITY [None]
  - CEREBRAL INFARCTION [None]
  - HAEMOGLOBIN DECREASED [None]
  - CYSTITIS INTERSTITIAL [None]
